FAERS Safety Report 19101119 (Version 7)
Quarter: 2024Q4

REPORT INFORMATION
  Report Type: Report from Study
  Country: BR (occurrence: BR)
  Receive Date: 20210407
  Receipt Date: 20241218
  Transmission Date: 20250115
  Serious: Yes (Other)
  Sender: NOVARTIS
  Company Number: NVSC2021BR076687

PATIENT
  Age: 56 Year
  Sex: Female

DRUGS (8)
  1. COSENTYX [Suspect]
     Active Substance: SECUKINUMAB
     Indication: Psoriasis
     Dosage: 1 DF, UNKNOWN
     Route: 065
     Dates: start: 20190214
  2. COSENTYX [Suspect]
     Active Substance: SECUKINUMAB
     Indication: Rheumatoid arthritis
     Dosage: 1 DF, UNKNOWN
     Route: 065
  3. COSENTYX [Suspect]
     Active Substance: SECUKINUMAB
     Indication: Psoriatic arthropathy
     Dosage: 2 DF, UNKNOWN
     Route: 065
     Dates: start: 20210313
  4. COSENTYX [Suspect]
     Active Substance: SECUKINUMAB
     Dosage: UNK
     Route: 065
     Dates: start: 20210518
  5. COSENTYX [Suspect]
     Active Substance: SECUKINUMAB
     Dosage: 150 MG, QMO
     Route: 065
  6. COSENTYX [Suspect]
     Active Substance: SECUKINUMAB
     Dosage: 300 MG (2 PENS OF 150 MG), QMO
     Route: 065
     Dates: start: 20240930
  7. COSENTYX [Suspect]
     Active Substance: SECUKINUMAB
     Dosage: 300 MG (2 PENS OF 150 MG), QMO
     Route: 065
     Dates: start: 20241029
  8. COSENTYX [Suspect]
     Active Substance: SECUKINUMAB
     Dosage: 300 MG (2 PENS OF 150 MG), QMO
     Route: 065
     Dates: start: 20241130

REACTIONS (13)
  - Rheumatic fever [Unknown]
  - Fungal oesophagitis [Recovering/Resolving]
  - Gastrointestinal fungal infection [Recovering/Resolving]
  - Abdominal pain upper [Recovering/Resolving]
  - Gastrointestinal candidiasis [Recovered/Resolved]
  - Decreased immune responsiveness [Unknown]
  - Hypersensitivity [Recovered/Resolved]
  - Stress [Unknown]
  - Emotional disorder [Unknown]
  - Gastritis [Unknown]
  - Urticaria [Recovered/Resolved]
  - Product use in unapproved indication [Unknown]
  - Food allergy [Unknown]

NARRATIVE: CASE EVENT DATE: 20210601
